FAERS Safety Report 23215636 (Version 2)
Quarter: 2024Q4

REPORT INFORMATION
  Report Type: Report from Study
  Country: FR (occurrence: FR)
  Receive Date: 20231122
  Receipt Date: 20241121
  Transmission Date: 20250114
  Serious: Yes (Other)
  Sender: AUROBINDO
  Company Number: FR-TILLOMEDPR-2023-EPL-005900

PATIENT
  Age: 8 Year
  Sex: Male

DRUGS (4)
  1. CARBOPLATIN [Suspect]
     Active Substance: CARBOPLATIN
     Indication: Retinoblastoma
     Dosage: UNK (2 CYCLES)
     Route: 042
  2. MELPHALAN [Suspect]
     Active Substance: MELPHALAN
     Indication: Retinoblastoma
     Dosage: UNK (TOTAL OF 8 INJECTIONS)
     Route: 042
  3. MELPHALAN [Suspect]
     Active Substance: MELPHALAN
     Dosage: 5 MILLIGRAM; TWO MONTHLY
     Route: 013
  4. ETOPOSIDE [Suspect]
     Active Substance: ETOPOSIDE
     Indication: Retinoblastoma
     Dosage: 2 CYCLES
     Route: 042

REACTIONS (3)
  - Iris discolouration [Recovered/Resolved]
  - Iris atrophy [Recovered/Resolved]
  - Off label use [Unknown]
